FAERS Safety Report 20129080 (Version 1)
Quarter: 2021Q4

REPORT INFORMATION
  Report Type: Report from Study
  Country: US (occurrence: US)
  Receive Date: 20211130
  Receipt Date: 20211130
  Transmission Date: 20220303
  Serious: Yes (Other)
  Sender: FDA-Public Use
  Company Number: US-AMGEN-USASL2021178093

PATIENT
  Age: 58 Year
  Sex: Male
  Weight: 98.866 kg

DRUGS (10)
  1. ENBREL [Suspect]
     Active Substance: ETANERCEPT
     Indication: Rheumatoid arthritis
     Dosage: UNK
     Route: 065
     Dates: start: 2000, end: 2005
  2. ENBREL [Suspect]
     Active Substance: ETANERCEPT
     Dosage: UNK
     Route: 065
     Dates: start: 2007, end: 202004
  3. ATORVASTATIN [Concomitant]
     Active Substance: ATORVASTATIN
     Dosage: 40 MILLIGRAM, QD
     Route: 048
  4. B-COMPLEX + VITAMIN C [Concomitant]
     Dosage: UNK
     Route: 048
  5. CALCIPOTRIENE [Concomitant]
     Active Substance: CALCIPOTRIENE
     Dosage: UNK
  6. LEVOTHYROXINE [Concomitant]
     Active Substance: LEVOTHYROXINE
     Dosage: 75 MICROGRAM, QD
     Route: 048
  7. LORATADINE [Concomitant]
     Active Substance: LORATADINE
     Dosage: 10 MILLIGRAM
     Route: 048
  8. OMEPRAZOLE [Concomitant]
     Active Substance: OMEPRAZOLE
     Dosage: 20 MILLIGRAM, QD
     Route: 048
  9. CHOLECALCIFEROL [Concomitant]
     Active Substance: CHOLECALCIFEROL
     Dosage: UNK UNK, QD
     Route: 048
  10. COVID-19 VACCINE [Concomitant]

REACTIONS (12)
  - Non-Hodgkin^s lymphoma [Unknown]
  - Diffuse large B-cell lymphoma stage II [Not Recovered/Not Resolved]
  - Arteriosclerosis coronary artery [Unknown]
  - Spinal cord compression [Unknown]
  - Nephrolithiasis [Unknown]
  - Aortic arteriosclerosis [Unknown]
  - Palpitations [Unknown]
  - Diverticulum intestinal [Unknown]
  - Prostatomegaly [Unknown]
  - Spinal osteoarthritis [Unknown]
  - Bone demineralisation [Unknown]
  - Musculoskeletal discomfort [Unknown]

NARRATIVE: CASE EVENT DATE: 20190101
